FAERS Safety Report 7701393-X (Version None)
Quarter: 2011Q3

REPORT INFORMATION
  Report Type: 
  Country: None (occurrence: None)
  Receive Date: 20110822
  Receipt Date: 20110812
  Transmission Date: 20111222
  Serious: Yes (Death, Hospitalization, Other)
  Sender: FDA-Public Use
  Company Number: US-ALEXION PHARMACEUTICALS INC.-A201101065

PATIENT
  Sex: Male

DRUGS (9)
  1. CARAFATE [Concomitant]
     Dosage: UNK
  2. LOMOTIL [Concomitant]
     Dosage: UNK
  3. SOLIRIS [Suspect]
     Indication: PAROXYSMAL NOCTURNAL HAEMOGLOBINURIA
     Dosage: 1200 MG, UNK
     Route: 042
     Dates: start: 20090401
  4. AMBIEN [Concomitant]
     Dosage: UNK
  5. HYDROCODONE [Concomitant]
     Dosage: UNK
  6. SILVER NITRATE [Concomitant]
     Dosage: UNK
  7. ARIXTRA [Concomitant]
     Dosage: UNK
  8. PHENERGAN HCL [Concomitant]
     Dosage: UNK
  9. LORTAB [Concomitant]
     Dosage: UNK

REACTIONS (12)
  - COLITIS [None]
  - DEATH [None]
  - PNEUMONIA [None]
  - LARGE INTESTINE PERFORATION [None]
  - MUSCLE HAEMORRHAGE [None]
  - WHITE BLOOD CELL COUNT INCREASED [None]
  - SEPTIC SHOCK [None]
  - HAEMORRHAGIC STROKE [None]
  - ARTHROPOD BITE [None]
  - WOUND [None]
  - ATELECTASIS [None]
  - SPLENIC HAEMORRHAGE [None]
